FAERS Safety Report 17097443 (Version 1)
Quarter: 2019Q4

REPORT INFORMATION
  Report Type: Other
  Country: US (occurrence: US)
  Receive Date: 20191202
  Receipt Date: 20191202
  Transmission Date: 20200122
  Serious: Yes (Life-Threatening, Other)
  Sender: FDA-Public Use
  Company Number: US-FDC LIMITED-2077340

PATIENT
  Age: 18 Year
  Sex: Female

DRUGS (3)
  1. CIPROFLOXACIN. [Suspect]
     Active Substance: CIPROFLOXACIN
     Indication: PRODUCT USED FOR UNKNOWN INDICATION
     Route: 065
  2. ACETAMINOPHEN. [Suspect]
     Active Substance: ACETAMINOPHEN
     Route: 065
  3. BORIC ACID [Suspect]
     Active Substance: BORIC ACID
     Route: 065

REACTIONS (4)
  - Myoclonus [Unknown]
  - Status epilepticus [Unknown]
  - Cardiomyopathy [Unknown]
  - Toxicity to various agents [Unknown]
